FAERS Safety Report 10025634 (Version 2)
Quarter: 2014Q1

REPORT INFORMATION
  Report Type: Spontaneous
  Country: US (occurrence: None)
  Receive Date: 20140314
  Receipt Date: 20140318
  Transmission Date: 20141002
  Serious: Yes (Hospitalization, Other)
  Sender: FDA-Public Use
  Company Number: ADR-2014-00410

PATIENT
  Age: 39 Year
  Sex: Female

DRUGS (2)
  1. BACLOFEN [Suspect]
     Indication: MUSCLE SPASTICITY
  2. ORAL MEDICATIONS [Suspect]

REACTIONS (3)
  - Brain death [None]
  - Intentional overdose [None]
  - Myocardial infarction [None]
